FAERS Safety Report 25017277 (Version 1)
Quarter: 2025Q1

REPORT INFORMATION
  Report Type: Spontaneous
  Country: US (occurrence: US)
  Receive Date: 20250227
  Receipt Date: 20250227
  Transmission Date: 20250408
  Serious: Yes (Hospitalization, Other)
  Sender: ACCORD
  Company Number: US-Accord-471033

PATIENT
  Age: 9 Decade
  Sex: Female

DRUGS (1)
  1. RANOLAZINE [Suspect]
     Active Substance: RANOLAZINE
     Indication: Angina unstable
     Dosage: INITIALLY STARTED TAKING 500MG

REACTIONS (2)
  - Epilepsy [Unknown]
  - Toxicity to various agents [Unknown]
